FAERS Safety Report 23806710 (Version 2)
Quarter: 2025Q2

REPORT INFORMATION
  Report Type: Spontaneous
  Country: US (occurrence: US)
  Receive Date: 20240502
  Receipt Date: 20250428
  Transmission Date: 20250717
  Serious: Yes (Other)
  Sender: AUROBINDO
  Company Number: US-MLMSERVICE-20191122-2054750-6

PATIENT
  Age: 69 Year
  Sex: Male

DRUGS (10)
  1. VORICONAZOLE [Interacting]
     Active Substance: VORICONAZOLE
     Indication: Aspergillus infection
     Route: 065
  2. VORICONAZOLE [Interacting]
     Active Substance: VORICONAZOLE
     Indication: Infection reactivation
  3. VORICONAZOLE [Interacting]
     Active Substance: VORICONAZOLE
     Indication: Granulomatous dermatitis
  4. VORICONAZOLE [Interacting]
     Active Substance: VORICONAZOLE
     Indication: Granuloma
  5. MYCOPHENOLIC ACID [Suspect]
     Active Substance: MYCOPHENOLIC ACID
     Indication: Immunosuppressant drug therapy
     Route: 065
  6. PREDNISONE [Suspect]
     Active Substance: PREDNISONE
     Indication: Immunosuppressant drug therapy
     Route: 065
  7. TACROLIMUS [Interacting]
     Active Substance: TACROLIMUS
     Indication: Immunosuppressant drug therapy
     Route: 065
  8. SULFAMETHOXAZOLE\TRIMETHOPRIM [Concomitant]
     Active Substance: SULFAMETHOXAZOLE\TRIMETHOPRIM
     Indication: Prophylaxis
     Route: 065
  9. VALGANCICLOVIR [Concomitant]
     Active Substance: VALGANCICLOVIR
     Indication: Prophylaxis
     Route: 065
  10. NYSTATIN [Concomitant]
     Active Substance: NYSTATIN
     Indication: Prophylaxis
     Route: 065

REACTIONS (10)
  - Drug level increased [Unknown]
  - Blood creatinine increased [Unknown]
  - Leukopenia [Unknown]
  - Cytomegalovirus viraemia [Unknown]
  - Granulomatous dermatitis [Recovered/Resolved]
  - Granuloma [Recovered/Resolved]
  - Aspergillus infection [Recovered/Resolved]
  - Infection reactivation [Recovered/Resolved]
  - Toxicity to various agents [Unknown]
  - Drug interaction [Unknown]
